FAERS Safety Report 14847414 (Version 2)
Quarter: 2018Q2

REPORT INFORMATION
  Report Type: Report from Study
  Country: DE (occurrence: DE)
  Receive Date: 20180504
  Receipt Date: 20180509
  Transmission Date: 20180711
  Serious: Yes (Hospitalization)
  Sender: FDA-Public Use
  Company Number: DE-PFIZER INC-2018177827

PATIENT
  Age: 47 Year
  Sex: Female

DRUGS (21)
  1. PANTOZOL [Concomitant]
     Active Substance: PANTOPRAZOLE SODIUM
     Dosage: UNK
     Dates: start: 20150302, end: 20170101
  2. IDEOS [Concomitant]
     Active Substance: CALCIUM CARBONATE\CHOLECALCIFEROL
     Indication: PROPHYLAXIS
     Dosage: UNK
     Route: 065
     Dates: start: 20160513
  3. L-THYROXIN [Concomitant]
     Active Substance: LEVOTHYROXINE SODIUM
     Dosage: UNK
     Route: 065
     Dates: start: 20160524
  4. ZOMETA [Suspect]
     Active Substance: ZOLEDRONIC ACID
     Dosage: DOSE REDUCED
     Route: 065
     Dates: end: 20151012
  5. LEVEMIR [Concomitant]
     Active Substance: INSULIN DETEMIR
     Dosage: UNK
     Route: 065
     Dates: start: 19990215
  6. MOXIFLOXACIN. [Concomitant]
     Active Substance: MOXIFLOXACIN
     Dosage: 400 MG, UNK
     Dates: start: 20170310, end: 20170314
  7. KALIENOR [Concomitant]
     Indication: HYPOKALAEMIA
     Dosage: UNK
     Route: 065
     Dates: start: 20150828, end: 20150829
  8. AMOCLAV [Concomitant]
     Active Substance: AMOXICILLIN\CLAVULANATE POTASSIUM
     Dosage: 875/125 MG
     Dates: start: 20170331, end: 20170404
  9. TORASEMID [Concomitant]
     Active Substance: TORSEMIDE
     Indication: OEDEMA
     Dosage: 10 MG, UNK
     Route: 065
     Dates: start: 20150706
  10. CARBOPLATIN. [Suspect]
     Active Substance: CARBOPLATIN
     Dosage: DOSE REDUCED
     Dates: end: 20151012
  11. EVEROLIMUS. [Suspect]
     Active Substance: EVEROLIMUS
     Dosage: UNK
  12. CARBOPLATIN. [Suspect]
     Active Substance: CARBOPLATIN
     Indication: BREAST CANCER
     Dosage: UNK
     Route: 065
     Dates: start: 20150209, end: 20150824
  13. GEMZAR [Suspect]
     Active Substance: GEMCITABINE HYDROCHLORIDE
     Dosage: DOSE REDUCED
     Route: 065
     Dates: end: 20151012
  14. XARELTO [Concomitant]
     Active Substance: RIVAROXABAN
     Indication: PROPHYLAXIS
     Dosage: UNK
     Dates: start: 201408, end: 20160120
  15. PARACETAMOL [Concomitant]
     Active Substance: ACETAMINOPHEN
     Indication: PAIN
     Dosage: 500 MG, AS NEEDED
     Dates: start: 20150126
  16. IBUPROFEN. [Concomitant]
     Active Substance: IBUPROFEN
     Indication: PAIN
     Dosage: 600 MG, AS NEEDED
     Route: 065
     Dates: start: 20140515
  17. GEMZAR [Suspect]
     Active Substance: GEMCITABINE HYDROCHLORIDE
     Indication: BREAST CANCER
     Dosage: UNK
     Dates: start: 20150209, end: 20150824
  18. NOVORAPID [Concomitant]
     Active Substance: INSULIN ASPART
     Indication: TYPE 1 DIABETES MELLITUS
     Dosage: UNK, AS NEEDED
     Dates: start: 20050815
  19. PLASTULEN [Concomitant]
     Indication: HAEMOGLOBIN DECREASED
     Dosage: UNK
     Route: 065
     Dates: start: 20150801, end: 20160203
  20. ZOMETA [Suspect]
     Active Substance: ZOLEDRONIC ACID
     Indication: BREAST CANCER
     Dosage: UNK
     Dates: start: 20150203, end: 20150824
  21. IRON [Concomitant]
     Active Substance: IRON
     Indication: PROPHYLAXIS
     Dosage: UNK
     Dates: start: 2015

REACTIONS (10)
  - Nausea [Recovered/Resolved]
  - Ketoacidosis [Recovered/Resolved]
  - Thrombocytopenia [Recovered/Resolved]
  - Blood glucose increased [Recovered/Resolved]
  - Lactic acidosis [Recovered/Resolved]
  - Abdominal pain [Recovered/Resolved]
  - Haematoma [Recovered/Resolved]
  - Depression [Not Recovered/Not Resolved]
  - Vomiting [Recovered/Resolved]
  - Metabolic acidosis [Recovered/Resolved]

NARRATIVE: CASE EVENT DATE: 20150422
